FAERS Safety Report 8111213-X (Version None)
Quarter: 2012Q1

REPORT INFORMATION
  Report Type: 
  Country: None (occurrence: None)
  Receive Date: 20120203
  Receipt Date: 20110624
  Transmission Date: 20120608
  Serious: No
  Sender: FDA-Public Use
  Company Number: US-GLAXOSMITHKLINE-A0932950A

PATIENT
  Age: 51 Year
  Sex: Male

DRUGS (2)
  1. OTHER MEDICATIONS [Concomitant]
  2. LAMICTAL [Suspect]
     Indication: EPILEPSY
     Dosage: 250MG PER DAY
     Route: 048

REACTIONS (1)
  - ACNE [None]
